FAERS Safety Report 19061106 (Version 3)
Quarter: 2021Q2

REPORT INFORMATION
  Report Type: Report from Study
  Country: US (occurrence: US)
  Receive Date: 20210325
  Receipt Date: 20210416
  Transmission Date: 20210717
  Serious: Yes (Hospitalization, Other)
  Sender: FDA-Public Use
  Company Number: US-JNJFOC-20210334367

PATIENT
  Age: 63 Year
  Sex: Female
  Weight: 68.6 kg

DRUGS (4)
  1. MACITENTAN [Suspect]
     Active Substance: MACITENTAN
     Indication: PULMONARY HYPERTENSION
     Route: 048
  2. ELIQUIS [Concomitant]
     Active Substance: APIXABAN
  3. REMODULIN [Concomitant]
     Active Substance: TREPROSTINIL
  4. ADEMPAS [Concomitant]
     Active Substance: RIOCIGUAT

REACTIONS (3)
  - Respiratory failure [Unknown]
  - Pulmonary arterial hypertension [Unknown]
  - Fluid retention [Unknown]

NARRATIVE: CASE EVENT DATE: 20210315
